FAERS Safety Report 19460966 (Version 1)
Quarter: 2021Q2

REPORT INFORMATION
  Report Type: Spontaneous
  Country: US (occurrence: US)
  Receive Date: 20210625
  Receipt Date: 20210625
  Transmission Date: 20210717
  Serious: No
  Sender: FDA-Public Use
  Company Number: US-ORGANON-O2106USA001711

PATIENT
  Sex: Female

DRUGS (2)
  1. NUVARING [Suspect]
     Active Substance: ETHINYL ESTRADIOL\ETONOGESTREL
     Indication: ENDOMETRIOSIS
     Dosage: 1 DOSAGE FORM, NEW ONE INSERTED EVERY 4 WEEKS
     Route: 067
     Dates: start: 2011
  2. NUVARING [Suspect]
     Active Substance: ETHINYL ESTRADIOL\ETONOGESTREL
     Indication: OVARIAN CYST
     Dosage: 1 DOSAGE FORM, NEW ONE INSERTED EVERY 4 WEEKS
     Route: 067

REACTIONS (4)
  - Intentional product misuse [Unknown]
  - Incorrect product administration duration [Unknown]
  - Endometriosis [Unknown]
  - Product use in unapproved indication [Unknown]
